FAERS Safety Report 10164748 (Version 1)
Quarter: 2014Q2

REPORT INFORMATION
  Report Type: Spontaneous
  Country: US (occurrence: US)
  Receive Date: 20140510
  Receipt Date: 20140510
  Transmission Date: 20141212
  Serious: No
  Sender: FDA-Public Use
  Company Number: US-BRISTOL-MYERS SQUIBB COMPANY-19600329

PATIENT
  Age: 78 Year
  Sex: Male
  Weight: 81.63 kg

DRUGS (10)
  1. BYDUREON [Suspect]
     Route: 058
     Dates: start: 2013
  2. OMEPRAZOLE [Concomitant]
  3. MULTIVITAMIN [Concomitant]
  4. BABY ASPIRIN [Concomitant]
  5. SYNTHROID [Concomitant]
  6. BENICAR [Concomitant]
  7. METFORMIN [Concomitant]
     Dosage: MORNING AND EVENING
  8. ZOCOR [Concomitant]
  9. ATENOLOL [Concomitant]
  10. VITAMIN D [Concomitant]

REACTIONS (1)
  - Injection site nodule [Unknown]
